FAERS Safety Report 9437879 (Version 1)
Quarter: 2013Q3

REPORT INFORMATION
  Report Type: Spontaneous
  Country: US (occurrence: US)
  Receive Date: 20130802
  Receipt Date: 20130802
  Transmission Date: 20140515
  Serious: No
  Sender: FDA-Public Use
  Company Number: US-BRISTOL-MYERS SQUIBB COMPANY-18722793

PATIENT
  Age: 63 Year
  Sex: Female

DRUGS (8)
  1. WARFARIN SODIUM [Suspect]
     Dosage: WARFARIN BEFORE
  2. LEVOTHYROXINE [Concomitant]
  3. LISINOPRIL [Concomitant]
  4. METOPROLOL [Concomitant]
  5. ATORVASTATIN [Concomitant]
  6. CALCIUM [Concomitant]
  7. OMEPRAZOLE [Concomitant]
  8. ALPRAZOLAM [Concomitant]

REACTIONS (1)
  - Blood count abnormal [Unknown]
